FAERS Safety Report 23181126 (Version 2)
Quarter: 2023Q4

REPORT INFORMATION
  Report Type: Report from Study
  Country: US (occurrence: US)
  Receive Date: 20231114
  Receipt Date: 20231117
  Transmission Date: 20240110
  Serious: Yes (Hospitalization)
  Sender: FDA-Public Use
  Company Number: US-JNJFOC-20230605875

PATIENT
  Age: 74 Year
  Sex: Female
  Weight: 96.4 kg

DRUGS (6)
  1. SELEXIPAG [Suspect]
     Active Substance: SELEXIPAG
     Indication: Pulmonary arterial hypertension
     Route: 048
  2. SELEXIPAG [Suspect]
     Active Substance: SELEXIPAG
     Route: 048
  3. SELEXIPAG [Suspect]
     Active Substance: SELEXIPAG
     Route: 048
  4. SELEXIPAG [Suspect]
     Active Substance: SELEXIPAG
     Route: 048
  5. OPSUMIT [Concomitant]
     Active Substance: MACITENTAN
  6. SILDENAFIL CITRATE [Concomitant]
     Active Substance: SILDENAFIL CITRATE

REACTIONS (19)
  - Pulmonary oedema [Unknown]
  - Hospitalisation [Unknown]
  - Oxygen saturation decreased [Unknown]
  - Urinary tract infection [Recovered/Resolved]
  - Adverse drug reaction [Unknown]
  - Spinal disorder [Unknown]
  - Sciatica [Unknown]
  - Pain [Not Recovered/Not Resolved]
  - Tachycardia [Not Recovered/Not Resolved]
  - Abdominal discomfort [Unknown]
  - Dyspepsia [Unknown]
  - Nausea [Unknown]
  - Headache [Unknown]
  - Dizziness [Unknown]
  - Arthralgia [Unknown]
  - Abdominal distension [Unknown]
  - Vomiting [Unknown]
  - Hyperchlorhydria [Unknown]
  - Constipation [Unknown]

NARRATIVE: CASE EVENT DATE: 20230530
